FAERS Safety Report 6857179-1 (Version None)
Quarter: 2010Q3

REPORT INFORMATION
  Report Type: 
  Country: None (occurrence: None)
  Receive Date: 20100719
  Receipt Date: 20100219
  Transmission Date: 20110219
  Serious: No
  Sender: FDA-Public Use
  Company Number: US-KINGPHARMUSA00001-K201000199

PATIENT
  Age: 2 Year
  Sex: Female
  Weight: 9.07 kg

DRUGS (2)
  1. LEVOXYL [Suspect]
     Indication: HYPOTHYROIDISM
     Dosage: 50 MCG QD
     Route: 048
     Dates: start: 20100208
  2. LEVOXYL [Suspect]
     Dosage: 25 MCG, QD
     Route: 048
     Dates: start: 20090301, end: 20100207

REACTIONS (1)
  - HYPERSOMNIA [None]
